FAERS Safety Report 8242287-3 (Version None)
Quarter: 2012Q1

REPORT INFORMATION
  Report Type: 
  Country: None (occurrence: None)
  Receive Date: 20120329
  Receipt Date: 20120328
  Transmission Date: 20120608
  Serious: No
  Sender: FDA-Public Use
  Company Number: US-PFIZER INC-2012079665

PATIENT
  Sex: Female
  Weight: 56.689 kg

DRUGS (3)
  1. CHANTIX [Suspect]
     Indication: SMOKING CESSATION THERAPY
     Dosage: 0.5 MG, 2X/DAY
     Dates: start: 20110201, end: 20110201
  2. REMICADE [Concomitant]
     Indication: CROHN'S DISEASE
     Dosage: 600 MG, MONTHLY
     Dates: start: 20020101
  3. LISINOPRIL [Concomitant]
     Indication: HYPERTENSION
     Dosage: 10 MG, 1X/DAY
     Dates: start: 20090101

REACTIONS (1)
  - DIZZINESS [None]
